FAERS Safety Report 9821131 (Version 3)
Quarter: 2014Q1

REPORT INFORMATION
  Report Type: Spontaneous
  Country: US (occurrence: US)
  Receive Date: 20140116
  Receipt Date: 20140319
  Transmission Date: 20141002
  Serious: Yes (Hospitalization, Other)
  Sender: FDA-Public Use
  Company Number: US-UCBSA-109028

PATIENT
  Age: 60 Year
  Sex: Female
  Weight: 50.8 kg

DRUGS (7)
  1. VIMPAT [Suspect]
     Indication: CONVULSION
     Dosage: 100 MG IN AM AND 100 MG IN PM
     Route: 048
  2. LAMICTAL [Concomitant]
     Indication: CONVULSION
     Dosage: 100 MG IN AM AND 150 MG IN PM
     Route: 048
  3. BABY ASPIRIN [Concomitant]
     Indication: CEREBROVASCULAR ACCIDENT
     Route: 048
  4. ZOLPIDEM [Concomitant]
     Indication: DEPRESSION
     Dosage: AT BEDTIME
     Route: 048
  5. MIRTAZAPINE [Concomitant]
     Indication: INSOMNIA
     Dosage: AT BEDTIME
     Route: 048
  6. OMEPRAZOLE [Concomitant]
     Indication: GASTROOESOPHAGEAL REFLUX DISEASE
     Dosage: 40 MG IN AM
     Route: 048
  7. ADVAIR DISKUS [Concomitant]
     Indication: CHRONIC OBSTRUCTIVE PULMONARY DISEASE
     Route: 048

REACTIONS (6)
  - Grand mal convulsion [Recovered/Resolved]
  - Pneumonia [Recovering/Resolving]
  - Cerebrovascular accident [Unknown]
  - Convulsion [Recovered/Resolved]
  - Dyspnoea [Recovering/Resolving]
  - Drug dose omission [Recovered/Resolved]
